FAERS Safety Report 15328020 (Version 1)
Quarter: 2018Q3

REPORT INFORMATION
  Report Type: Report from Study
  Country: KR (occurrence: KR)
  Receive Date: 20180828
  Receipt Date: 20180828
  Transmission Date: 20181010
  Serious: Yes (Hospitalization)
  Sender: FDA-Public Use
  Company Number: KR-AMGEN-KORNI2018117529

PATIENT
  Age: 55 Year
  Sex: Male
  Weight: 72.8 kg

DRUGS (32)
  1. DENOGAN [Concomitant]
     Active Substance: PROPACETAMOL HYDROCHLORIDE
     Dosage: 1 G, UNK
     Dates: start: 20180531, end: 20180603
  2. MUTERAN [Concomitant]
     Active Substance: ACETYLCYSTEINE
     Dosage: 200 MG, UNK
     Dates: start: 20180601, end: 20180605
  3. DIAMICRON [Concomitant]
     Active Substance: GLICLAZIDE
     Dosage: 1 UNK, UNK
     Dates: start: 20180605, end: 20180608
  4. ZOLEDRONIC ACID [Concomitant]
     Active Substance: ZOLEDRONIC ACID
     Dosage: 5 MG, UNK
     Dates: start: 20180716, end: 20180716
  5. SUGANON [Concomitant]
     Dosage: 1 UNK, UNK
     Dates: start: 20180731
  6. FEROBA YOU [Concomitant]
     Dosage: 1 UNK, UNK
     Dates: start: 20170904
  7. SYNATURA [Concomitant]
     Dosage: 15 ML, UNK
     Dates: start: 20180531, end: 20180605
  8. CALCIUM CARBONATE. [Concomitant]
     Active Substance: CALCIUM CARBONATE
     Dosage: 500 MG, UNK
     Dates: start: 20180803, end: 20180809
  9. TASNA [Concomitant]
     Dosage: 1000 MG, UNK
     Dates: start: 20180804, end: 20180809
  10. CAVID [Concomitant]
     Dosage: 1 UNK, UNK
     Dates: start: 20180727
  11. ROSUVAMIBE [Concomitant]
     Dosage: 1 UNK, UNK
     Dates: start: 20170807
  12. FOLIC ACID. [Concomitant]
     Active Substance: FOLIC ACID
     Dosage: 1 MG, UNK
     Dates: start: 20170904
  13. KALIMATE [Concomitant]
     Active Substance: CALCIUM POLYSTYRENE SULFONATE
     Dosage: 10 G, UNK
     Dates: start: 20180524, end: 20180525
  14. CARFILZOMIB [Suspect]
     Active Substance: CARFILZOMIB
     Indication: PLASMA CELL MYELOMA
     Dosage: 101 MG, UNK
     Route: 042
     Dates: start: 20180427
  15. LYRICA [Concomitant]
     Active Substance: PREGABALIN
     Dosage: 150 MG, UNK
     Dates: start: 20151208, end: 20180730
  16. MACPERAN [Concomitant]
     Active Substance: METOCLOPRAMIDE HYDROCHLORIDE
     Dosage: 5?10 MG, UNK
     Dates: start: 20180629
  17. TARGIN [Concomitant]
     Active Substance: NALOXONE HYDROCHLORIDE\OXYCODONE HYDROCHLORIDE
     Dosage: 1 UNK, UNK
     Dates: start: 20151107
  18. MEROPEN [Concomitant]
     Active Substance: MEROPENEM
     Dosage: 1 G, UNK
     Dates: start: 20180602, end: 20180608
  19. ACTOS [Concomitant]
     Active Substance: PIOGLITAZONE HYDROCHLORIDE
     Dosage: 30 MG, UNK
     Dates: start: 20180607, end: 20180608
  20. LANTUS [Concomitant]
     Active Substance: INSULIN GLARGINE
     Dosage: 8 UNK, UNK
     Dates: start: 20180601
  21. URUSA [Concomitant]
     Dosage: 100 MG, UNK
     Dates: start: 20180712, end: 20180718
  22. FEXORIN [Concomitant]
     Dosage: 40 MG, UNK
     Dates: start: 20180206, end: 20180814
  23. CODEINE PHOSPHATE [Concomitant]
     Active Substance: CODEINE PHOSPHATE
     Dosage: 1 UNK, UNK
     Dates: start: 20180606, end: 20180615
  24. VITAMIN D3 B.O.N. [Concomitant]
     Dosage: 5 MG, UNK
     Dates: start: 20180716, end: 20180716
  25. TRAJENTA [Concomitant]
     Active Substance: LINAGLIPTIN
     Dosage: 5 MG, UNK
     Dates: start: 20150909, end: 20180607
  26. DEXAMETHASONE. [Concomitant]
     Active Substance: DEXAMETHASONE
     Dosage: 20 MG, UNK
     Dates: start: 20180525, end: 20180823
  27. VACRAX [Concomitant]
     Dosage: 400 MG, UNK
     Dates: start: 20180427
  28. CRAVIT [Concomitant]
     Active Substance: LEVOFLOXACIN
     Dosage: 500 MG, UNK
     Dates: start: 20180531, end: 20180615
  29. ERDOS [Concomitant]
     Active Substance: ERDOSTEINE
     Dosage: 300 MG, UNK
     Dates: start: 20180531, end: 20180615
  30. SEPTRIN [Concomitant]
     Active Substance: SULFAMETHOXAZOLE\TRIMETHOPRIM
     Dosage: 1 UNK, UNK
     Dates: start: 20180427
  31. RENAMEZIN [Concomitant]
     Dosage: 1 UNK, UNK
     Dates: start: 20180731
  32. NEXIUM [Concomitant]
     Active Substance: ESOMEPRAZOLE MAGNESIUM
     Dosage: 20 MG, UNK
     Dates: start: 20180727

REACTIONS (1)
  - Hypophagia [Recovered/Resolved]

NARRATIVE: CASE EVENT DATE: 20180811
